FAERS Safety Report 9637960 (Version 2)
Quarter: 2013Q4

REPORT INFORMATION
  Report Type: Report from Study
  Country: CA (occurrence: CA)
  Receive Date: 20131022
  Receipt Date: 20131022
  Transmission Date: 20140711
  Serious: Yes (Other)
  Sender: FDA-Public Use
  Company Number: CA-ABBVIE-13P-028-1098553-00

PATIENT
  Age: 38 Year
  Sex: Female
  Weight: 59.93 kg

DRUGS (14)
  1. HUMIRA [Suspect]
     Indication: RETINAL VASCULITIS
     Route: 058
     Dates: start: 20130404, end: 201310
  2. HUMIRA [Suspect]
     Indication: EYE INFLAMMATION
  3. PREDNISONE [Suspect]
     Indication: RETINAL VASCULITIS
     Dosage: VARIOUS DOSES
     Route: 048
     Dates: start: 201209
  4. ZOPICLONE [Concomitant]
     Indication: SLEEP DISORDER THERAPY
     Route: 048
     Dates: start: 201211
  5. RISEDRONATE [Concomitant]
     Indication: OSTEOPENIA
     Route: 048
     Dates: start: 201302
  6. PREDNISOLONE [Concomitant]
     Indication: EYE INFLAMMATION
     Route: 047
     Dates: start: 201207
  7. AZARGA [Concomitant]
     Indication: GLAUCOMA
     Route: 047
     Dates: start: 201210
  8. MAXIDEX [Concomitant]
     Indication: PROPHYLAXIS
     Route: 047
     Dates: start: 201202
  9. MAXIDEX [Concomitant]
     Indication: SCAR
  10. NEVANAC [Concomitant]
     Indication: PROPHYLAXIS
     Route: 047
     Dates: start: 201302
  11. NEVANAC [Concomitant]
     Indication: POST PROCEDURAL COMPLICATION
  12. ACTONEL [Concomitant]
     Indication: PRODUCT USED FOR UNKNOWN INDICATION
     Dates: start: 201212
  13. YASMIN [Concomitant]
     Indication: PRODUCT USED FOR UNKNOWN INDICATION
  14. UNKNOWN EYEDROPS [Concomitant]
     Indication: PRODUCT USED FOR UNKNOWN INDICATION

REACTIONS (6)
  - Intraocular pressure decreased [Unknown]
  - Suture rupture [Recovered/Resolved]
  - Intraocular pressure increased [Unknown]
  - Cataract [Not Recovered/Not Resolved]
  - Uveitis [Not Recovered/Not Resolved]
  - Anxiety [Recovered/Resolved]
